FAERS Safety Report 8327721-2 (Version None)
Quarter: 2012Q2

REPORT INFORMATION
  Report Type: 
  Country: None (occurrence: None)
  Receive Date: 20120502
  Receipt Date: 20120424
  Transmission Date: 20120825
  Serious: No
  Sender: FDA-Public Use
  Company Number: US-PFIZER INC-2012086689

PATIENT
  Sex: Female
  Weight: 129.3 kg

DRUGS (13)
  1. MELOXICAM [Concomitant]
     Dosage: 7.5 MG, AS NEEDED
     Route: 048
  2. OMEPRAZOLE [Concomitant]
     Dosage: 200 MG, 1X/DAY
     Route: 048
  3. DRONEDARONE [Concomitant]
     Dosage: 400 MG, 2X/DAY
  4. VITAMIN D [Concomitant]
     Dosage: UNK
  5. DIGOXIN [Concomitant]
     Dosage: 0.25 MG, 1X/DAY
     Route: 048
  6. TOVIAZ [Suspect]
     Indication: HYPERTONIC BLADDER
     Dosage: 4 MG, 1X/DAY
     Route: 048
     Dates: start: 20120404
  7. ALPRAZOLAM [Concomitant]
     Dosage: 0.25 MG, 3X/DAY
     Route: 048
  8. PANTOPRAZOLE [Concomitant]
     Dosage: 40 MG, 1X/DAY
     Route: 048
  9. DILTIAZEM [Concomitant]
     Dosage: 360 MG, 1X/DAY
     Route: 048
  10. FISH OIL [Concomitant]
     Dosage: UNK
  11. LOSARTAN [Concomitant]
     Dosage: UNK, 1X/DAY
     Route: 048
  12. FUROSEMIDE [Concomitant]
     Dosage: 20 MG, AS NEEDED
  13. ALLOPURINOL [Concomitant]
     Dosage: 300 MG, 1X/DAY

REACTIONS (1)
  - PALPITATIONS [None]
